FAERS Safety Report 19110936 (Version 1)
Quarter: 2021Q2

REPORT INFORMATION
  Report Type: Spontaneous
  Country: US (occurrence: US)
  Receive Date: 20210409
  Receipt Date: 20210409
  Transmission Date: 20210717
  Serious: No
  Sender: FDA-Public Use
  Company Number: US-BIOVITRUM-2021US3504

PATIENT
  Sex: Female
  Weight: 5 kg

DRUGS (3)
  1. SYNAGIS [Suspect]
     Active Substance: PALIVIZUMAB
     Indication: PREMATURE BABY
     Dosage: 100MG/1ML VL LIQUID
     Route: 030
     Dates: start: 202101
  2. SYNAGIS [Suspect]
     Active Substance: PALIVIZUMAB
     Indication: LOW BIRTH WEIGHT BABY
  3. POLY?VI?SOL WITH IRON [Concomitant]
     Active Substance: IRON\VITAMINS

REACTIONS (1)
  - Injection site bruising [Recovered/Resolved]
